FAERS Safety Report 8281655-0 (Version None)
Quarter: 2012Q2

REPORT INFORMATION
  Report Type: 
  Country: None (occurrence: None)
  Receive Date: 20120413
  Receipt Date: 20120407
  Transmission Date: 20120825
  Serious: Yes (Other)
  Sender: FDA-Public Use
  Company Number: IN-PFIZER INC-2012021328

PATIENT
  Age: 59 Year
  Sex: Male

DRUGS (1)
  1. SUTENT [Suspect]
     Indication: METASTATIC RENAL CELL CARCINOMA
     Dosage: 50 MG, 1X/DAY
     Route: 048
     Dates: start: 20110630

REACTIONS (6)
  - SKIN EXFOLIATION [None]
  - SKIN DISCOLOURATION [None]
  - HAEMOGLOBIN DECREASED [None]
  - SWOLLEN TONGUE [None]
  - OEDEMA PERIPHERAL [None]
  - APHAGIA [None]
